FAERS Safety Report 15680988 (Version 1)
Quarter: 2018Q4

REPORT INFORMATION
  Report Type: Spontaneous
  Country: IL (occurrence: IL)
  Receive Date: 20181203
  Receipt Date: 20181203
  Transmission Date: 20190205
  Serious: Yes (Life-Threatening)
  Sender: FDA-Public Use
  Company Number: IL-TEVA-2018-IL-982608

PATIENT
  Age: 33 Year
  Sex: Male

DRUGS (2)
  1. PROPRANOLOL 40MG [Concomitant]
     Route: 065
  2. VERAPAMIL [Suspect]
     Active Substance: VERAPAMIL HYDROCHLORIDE
     Indication: ATRIAL FIBRILLATION
     Route: 065
     Dates: start: 20181014

REACTIONS (6)
  - Nausea [Unknown]
  - Pallor [Unknown]
  - Hyperglycaemia [Unknown]
  - Pulse abnormal [Unknown]
  - Blood pressure abnormal [Unknown]
  - Hyperhidrosis [Unknown]
